FAERS Safety Report 7236475-2 (Version None)
Quarter: 2011Q1

REPORT INFORMATION
  Report Type: 
  Country: None (occurrence: None)
  Receive Date: 20110112
  Receipt Date: 20110104
  Transmission Date: 20110831
  Serious: Yes (Hospitalization)
  Sender: FDA-Public Use
  Company Number: 2010-4277

PATIENT
  Age: 77 Year
  Sex: Male

DRUGS (1)
  1. APO-GO (PFS (APO-GO) (APOMORPHINE HYDROCHLORIDE) (APOMORPHINE HYDROCHL [Suspect]
     Indication: PRODUCT USED FOR UNKNOWN INDICATION
     Dosage: 7AM TO 11PM AT A RATE 4.5MG/H (4.5 MG,16 IN 24 HR), SUBCUTANEOUS
     Route: 058
     Dates: start: 20080703

REACTIONS (5)
  - INSOMNIA [None]
  - ON AND OFF PHENOMENON [None]
  - GENERAL PHYSICAL HEALTH DETERIORATION [None]
  - HALLUCINATION [None]
  - SOMNOLENCE [None]
